FAERS Safety Report 10358012 (Version 1)
Quarter: 2014Q3

REPORT INFORMATION
  Report Type: Report from Study
  Country: CO (occurrence: CO)
  Receive Date: 20140801
  Receipt Date: 20140801
  Transmission Date: 20150326
  Serious: Yes (Hospitalization)
  Sender: FDA-Public Use
  Company Number: CO-SA-2014SA099806

PATIENT
  Age: 48 Year
  Sex: Female

DRUGS (1)
  1. AUBAGIO [Suspect]
     Active Substance: TERIFLUNOMIDE
     Indication: MULTIPLE SCLEROSIS
     Route: 048

REACTIONS (4)
  - Urinary tract infection [Not Recovered/Not Resolved]
  - Back pain [Unknown]
  - Malaise [Unknown]
  - Headache [Unknown]

NARRATIVE: CASE EVENT DATE: 20140722
